FAERS Safety Report 15880912 (Version 3)
Quarter: 2019Q4

REPORT INFORMATION
  Report Type: Spontaneous
  Country: US (occurrence: US)
  Receive Date: 20190128
  Receipt Date: 20191213
  Transmission Date: 20200122
  Serious: No
  Sender: FDA-Public Use
  Company Number: PHEH2019US004008

PATIENT
  Sex: Male

DRUGS (1)
  1. VOTRIENT [Suspect]
     Active Substance: PAZOPANIB HYDROCHLORIDE
     Indication: ESSENTIAL THROMBOCYTHAEMIA
     Dosage: 800 MG, QD
     Route: 048
     Dates: start: 20180112

REACTIONS (7)
  - Diarrhoea [Unknown]
  - Product use in unapproved indication [Unknown]
  - Nausea [Unknown]
  - Hair colour changes [Unknown]
  - Hypertension [Unknown]
  - Fungal infection [Unknown]
  - Skin discolouration [Unknown]
